FAERS Safety Report 4571923-8 (Version None)
Quarter: 2005Q1

REPORT INFORMATION
  Report Type: 
  Country: None (occurrence: None)
  Receive Date: 20050202
  Receipt Date: 20050119
  Transmission Date: 20050727
  Serious: Yes (Death, Hospitalization)
  Sender: FDA-Public Use
  Company Number: FABR-10912

PATIENT
  Age: 55 Year
  Sex: Male
  Weight: 70.3 kg

DRUGS (1)
  1. FABRAZYME [Suspect]
     Indication: FABRY'S DISEASE
     Dosage: 70 MG Q2WKS IV
     Route: 042
     Dates: start: 20030714, end: 20050106

REACTIONS (13)
  - AGGRESSION [None]
  - AORTIC EMBOLUS [None]
  - CARDIOMEGALY [None]
  - CEREBROVASCULAR ACCIDENT [None]
  - CORONARY ARTERY DISEASE [None]
  - DISORIENTATION [None]
  - DYSPNOEA [None]
  - EJECTION FRACTION DECREASED [None]
  - HEADACHE [None]
  - PULMONARY EMBOLISM [None]
  - PULMONARY INFARCTION [None]
  - PYREXIA [None]
  - VENA CAVA THROMBOSIS [None]
